FAERS Safety Report 16559909 (Version 1)
Quarter: 2019Q3

REPORT INFORMATION
  Report Type: Report from Study
  Country: AU (occurrence: AU)
  Receive Date: 20190711
  Receipt Date: 20190711
  Transmission Date: 20191004
  Serious: Yes (Death, Other)
  Sender: FDA-Public Use
  Company Number: AU-ROCHE-2352912

PATIENT
  Sex: Male

DRUGS (2)
  1. ALTEPLASE. [Suspect]
     Active Substance: ALTEPLASE
     Indication: MYOCARDIAL INFARCTION
     Dosage: AN INTRAVENOUS BOLUS OF 10 ML WAS FOLLOWED BY 50 ML OVER THE NEXT HOUR DELIVERED BY CONSTANT INFUSIO
     Route: 040
  2. ALTEPLASE. [Suspect]
     Active Substance: ALTEPLASE
     Route: 042

REACTIONS (2)
  - Cerebral haemorrhage [Fatal]
  - Contusion [Unknown]
